FAERS Safety Report 18870938 (Version 3)
Quarter: 2021Q1

REPORT INFORMATION
  Report Type: Spontaneous
  Country: JP (occurrence: JP)
  Receive Date: 20210209
  Receipt Date: 20210319
  Transmission Date: 20210420
  Serious: Yes (Other)
  Sender: FDA-Public Use
  Company Number: JP-PFIZER INC-2021127082

PATIENT
  Age: 69 Year
  Sex: Female
  Weight: 47.5 kg

DRUGS (9)
  1. BRAFTOVI [Suspect]
     Active Substance: ENCORAFENIB
     Indication: COLON CANCER
     Dosage: 300 MG, EVERYDAY
     Route: 048
     Dates: start: 20210203, end: 20210203
  2. CODEINE PHOSPHATE HYDRATE [Concomitant]
     Active Substance: CODEINE PHOSPHATE
     Dosage: 20 MG, Q8H
     Route: 048
     Dates: start: 20201215
  3. LIXIANA OD [Concomitant]
     Active Substance: EDOXABAN TOSYLATE
     Dosage: 30 MG, EVERYDAY
     Route: 048
  4. NEXIUM [Concomitant]
     Active Substance: ESOMEPRAZOLE MAGNESIUM
     Dosage: 20 MG, EVERYDAY
     Route: 048
     Dates: start: 20201028
  5. L?CARBOCISTEINE [Concomitant]
     Active Substance: CARBOCYSTEINE
     Dosage: 500 MG, Q8H
     Route: 048
     Dates: start: 20201210
  6. MOVICOL [MACROGOL 4000;POTASSIUM CHLORIDE;SODIUM BICARBONATE;SODIUM CH [Concomitant]
     Dosage: 6.85 G, EVERYDAY
     Route: 048
     Dates: start: 20201223
  7. BISOPROLOL FUMARATE. [Concomitant]
     Active Substance: BISOPROLOL FUMARATE
     Dosage: 0.625 MG, Q8H
     Route: 048
  8. MEKTOVI [Suspect]
     Active Substance: BINIMETINIB
     Indication: COLON CANCER
     Dosage: 45 MG, EVERYDAY
     Route: 048
     Dates: start: 20210203, end: 20210203
  9. CETUXIMAB. [Concomitant]
     Active Substance: CETUXIMAB
     Indication: COLON CANCER
     Dosage: UNK
     Dates: start: 20210203, end: 20210203

REACTIONS (1)
  - Macular detachment [Recovered/Resolved]

NARRATIVE: CASE EVENT DATE: 20210203
